APPROVED DRUG PRODUCT: OXAYDO
Active Ingredient: OXYCODONE HYDROCHLORIDE
Strength: 7.5MG
Dosage Form/Route: TABLET;ORAL
Application: N202080 | Product #002
Applicant: ZYLA LIFE SCIENCES US INC
Approved: Jun 17, 2011 | RLD: Yes | RS: No | Type: DISCN